FAERS Safety Report 16841929 (Version 1)
Quarter: 2019Q3

REPORT INFORMATION
  Report Type: Spontaneous
  Country: CO (occurrence: CO)
  Receive Date: 20190923
  Receipt Date: 20190923
  Transmission Date: 20191005
  Serious: Yes (Other)
  Sender: FDA-Public Use
  Company Number: PHHY2019CO220338

PATIENT
  Age: 51 Year
  Sex: Female

DRUGS (1)
  1. LOSARTAN. [Suspect]
     Active Substance: LOSARTAN
     Indication: HYPERTENSION
     Dosage: 50 MG, BID (Q12H)
     Route: 065

REACTIONS (12)
  - Pain in extremity [Unknown]
  - Dizziness [Unknown]
  - Seizure [Unknown]
  - Urinary incontinence [Unknown]
  - Cold sweat [Unknown]
  - Ill-defined disorder [Unknown]
  - Anal incontinence [Unknown]
  - Eye movement disorder [Unknown]
  - Pallor [Unknown]
  - Chest pain [Unknown]
  - Inappropriate schedule of product administration [Unknown]
  - Syncope [Unknown]
